FAERS Safety Report 8490916-1 (Version None)
Quarter: 2012Q2

REPORT INFORMATION
  Report Type: 
  Country: None (occurrence: None)
  Receive Date: 20120629
  Receipt Date: 20120629
  Transmission Date: 20120825
  Serious: Yes (Other)
  Sender: FDA-Public Use
  Company Number: None

PATIENT
  Sex: Female

DRUGS (1)
  1. BUPROPION HCL [Suspect]
     Dosage: 150MG XL ONCE DAILY PO
     Route: 048
     Dates: start: 20120516, end: 20120519

REACTIONS (3)
  - PAIN IN EXTREMITY [None]
  - DYSPNOEA [None]
  - ASTHENIA [None]
